FAERS Safety Report 11313494 (Version 1)
Quarter: 2015Q3

REPORT INFORMATION
  Report Type: Report from Study
  Country: ES (occurrence: ES)
  Receive Date: 20150727
  Receipt Date: 20150727
  Transmission Date: 20151125
  Serious: Yes (Hospitalization)
  Sender: FDA-Public Use
  Company Number: ES-SA-2015SA106064

PATIENT
  Age: 89 Year
  Sex: Female

DRUGS (10)
  1. SINTROM [Interacting]
     Active Substance: ACENOCOUMAROL
     Indication: ATRIAL FIBRILLATION
     Dosage: SP
     Route: 048
     Dates: start: 201403
  2. FUROSEMIDE. [Concomitant]
     Active Substance: FUROSEMIDE
     Indication: CARDIAC FAILURE CONGESTIVE
  3. HALOPERIDOL. [Concomitant]
     Active Substance: HALOPERIDOL
     Indication: CONDUCT DISORDER
     Dosage: 10 GOTAS CADA 8 HORAS
     Route: 048
     Dates: start: 20140710, end: 20140718
  4. PANTOPRAZOLE SODIUM. [Concomitant]
     Active Substance: PANTOPRAZOLE SODIUM
     Indication: PROPHYLAXIS AGAINST GASTROINTESTINAL ULCER
     Dosage: 1 AMP
     Route: 042
     Dates: start: 20140718
  5. DIGOXIN. [Concomitant]
     Active Substance: DIGOXIN
     Indication: ATRIAL FIBRILLATION
     Dosage: 0.125 MG DIA
     Route: 048
     Dates: start: 201403
  6. ERTAPENEM [Concomitant]
     Active Substance: ERTAPENEM
     Indication: ASPIRATION BRONCHIAL
     Dosage: 1 GR
     Route: 042
     Dates: start: 20140717
  7. FUROSEMIDE. [Concomitant]
     Active Substance: FUROSEMIDE
     Indication: CARDIAC FAILURE CONGESTIVE
     Dosage: 1 AMP
     Route: 042
     Dates: start: 20140718
  8. CLEXANE [Suspect]
     Active Substance: ENOXAPARIN SODIUM
     Indication: ATRIAL FIBRILLATION
     Dosage: 60MG/12H
     Route: 058
     Dates: start: 20140717, end: 20140721
  9. CARVEDILOL. [Concomitant]
     Active Substance: CARVEDILOL
     Indication: CARDIAC FAILURE CONGESTIVE
     Dosage: 1-0-1
     Route: 048
     Dates: start: 201403
  10. ESCITALOPRAM [Concomitant]
     Active Substance: ESCITALOPRAM OXALATE
     Indication: DEPRESSION
     Dosage: 1-0-0
     Route: 048
     Dates: start: 2013, end: 20140718

REACTIONS (5)
  - Haemodynamic instability [Recovered/Resolved]
  - Muscle haemorrhage [Recovered/Resolved]
  - Confusional state [Recovered/Resolved]
  - Urinary retention [Recovered/Resolved]
  - Anaemia [Recovered/Resolved]

NARRATIVE: CASE EVENT DATE: 20140718
